FAERS Safety Report 9042607 (Version 1)
Quarter: 2013Q1

REPORT INFORMATION
  Report Type: Report from Study
  Country: US (occurrence: US)
  Receive Date: 20130129
  Receipt Date: 20130129
  Transmission Date: 20140127
  Serious: No
  Sender: FDA-Public Use
  Company Number: US-ABBOTT-12P-163-0908660-00

PATIENT
  Age: 29 Year
  Sex: Female

DRUGS (10)
  1. HUMIRA 40 MG/0.8 ML PEN [Suspect]
     Indication: PSORIASIS
     Dates: start: 201010
  2. METHOTREXATE [Concomitant]
     Indication: RHEUMATOID ARTHRITIS
  3. MULTIVITAMIN [Concomitant]
     Indication: PRODUCT USED FOR UNKNOWN INDICATION
  4. FOLIC ACID [Concomitant]
     Indication: PRODUCT USED FOR UNKNOWN INDICATION
  5. VIT D [Concomitant]
     Indication: VITAMIN SUPPLEMENTATION
     Dosage: 5000 UNITS DAILY
  6. VIT D [Concomitant]
     Indication: DRUG THERAPY
  7. IBUPROFEN [Concomitant]
     Indication: PAIN
  8. IBUPROFEN [Concomitant]
     Indication: PAIN
  9. TYLENOL [Concomitant]
     Indication: PAIN
  10. TYLENOL [Concomitant]
     Indication: PAIN

REACTIONS (3)
  - Injection site pain [Recovering/Resolving]
  - Wrong technique in drug usage process [Recovering/Resolving]
  - Incorrect dose administered [Recovering/Resolving]
